FAERS Safety Report 24240133 (Version 1)
Quarter: 2024Q3

REPORT INFORMATION
  Report Type: Spontaneous
  Country: CN (occurrence: CN)
  Receive Date: 20240822
  Receipt Date: 20240822
  Transmission Date: 20241016
  Serious: Yes (Life-Threatening)
  Sender: BAYER
  Company Number: CN-BAYER-2024A119328

PATIENT
  Age: 69 Year
  Sex: Female
  Weight: 65.5 kg

DRUGS (6)
  1. GLUCOBAY [Interacting]
     Active Substance: ACARBOSE
     Indication: Type 2 diabetes mellitus
     Dosage: 50 MG, TID
     Route: 048
     Dates: start: 20240812, end: 20240812
  2. REPAGLINIDE [Interacting]
     Active Substance: REPAGLINIDE
     Indication: Type 2 diabetes mellitus
     Dosage: 1 MG, TID
     Route: 048
     Dates: start: 20230801, end: 20240819
  3. INSULIN DEGLUDEC [Interacting]
     Active Substance: INSULIN DEGLUDEC
     Indication: Type 2 diabetes mellitus
     Dosage: 15 IU, QD
     Route: 058
     Dates: start: 20230101, end: 20240811
  4. INSULIN DEGLUDEC [Interacting]
     Active Substance: INSULIN DEGLUDEC
     Indication: Type 2 diabetes mellitus
     Dosage: 15 IU, QD
     Route: 058
     Dates: start: 20240813, end: 20240819
  5. CANAGLIFLOZIN [Interacting]
     Active Substance: CANAGLIFLOZIN
     Indication: Type 2 diabetes mellitus
     Dosage: 0.1 G, QD
     Route: 048
     Dates: start: 20230101, end: 20240819
  6. METFORMIN HYDROCHLORIDE [Interacting]
     Active Substance: METFORMIN HYDROCHLORIDE
     Indication: Type 2 diabetes mellitus
     Dosage: 0.5 G, TID
     Route: 048
     Dates: start: 20230101, end: 20240819

REACTIONS (6)
  - Diarrhoea [Recovered/Resolved]
  - Nausea [Recovering/Resolving]
  - Dizziness [Recovering/Resolving]
  - Asthenia [Recovering/Resolving]
  - Blood glucose decreased [Recovered/Resolved]
  - Mental fatigue [None]

NARRATIVE: CASE EVENT DATE: 20240812
